FAERS Safety Report 6839251-5 (Version None)
Quarter: 2010Q3

REPORT INFORMATION
  Report Type: 
  Country: None (occurrence: None)
  Receive Date: 20100708
  Receipt Date: 20100630
  Transmission Date: 20110219
  Serious: Yes (Death, Life-Threatening, Hospitalization)
  Sender: FDA-Public Use
  Company Number: 2010JP003773

PATIENT
  Age: 47 Year
  Sex: Female

DRUGS (4)
  1. TACROLIMUS [Suspect]
     Indication: LUPUS NEPHRITIS
     Dosage: 2MG, /D, ORAL; 4 MG, /D, ORAL
     Route: 048
  2. CELLCEPT [Suspect]
     Indication: LUPUS NEPHRITIS
     Dosage: 0.5 G, /D, ORAL; 1.0 G, /D, ORAL
     Route: 048
  3. METHYLPREDNISOLONE [Suspect]
     Indication: LUPUS NEPHRITIS
     Dosage: 0.5 B, /D, IV NOS; 80 MG, /D, IV NOS
     Route: 042
  4. PREDNISOLONE [Suspect]
     Indication: LUPUS NEPHRITIS
     Dosage: 0.6 MG/KG, /D, ORAL
     Route: 048

REACTIONS (11)
  - ANAEMIA [None]
  - CARDIAC ARREST [None]
  - DIALYSIS [None]
  - KLEBSIELLA TEST POSITIVE [None]
  - LUNG INFECTION [None]
  - NEUTROPHIL PERCENTAGE INCREASED [None]
  - PCO2 DECREASED [None]
  - PLEURAL EFFUSION [None]
  - RESPIRATORY FAILURE [None]
  - THROMBOCYTOPENIA [None]
  - TREMOR [None]
